FAERS Safety Report 16411589 (Version 1)
Quarter: 2019Q2

REPORT INFORMATION
  Report Type: Report from Study
  Country: CA (occurrence: CA)
  Receive Date: 20190610
  Receipt Date: 20190610
  Transmission Date: 20190711
  Serious: Yes (Other)
  Sender: FDA-Public Use
  Company Number: CA-JNJFOC-20190315869

PATIENT
  Sex: Female
  Weight: 62.37 kg

DRUGS (1)
  1. TREMFYA [Suspect]
     Active Substance: GUSELKUMAB
     Indication: HIDRADENITIS
     Route: 058
     Dates: start: 20190208, end: 20190506

REACTIONS (6)
  - Condition aggravated [Unknown]
  - Off label use [Unknown]
  - Abscess [Unknown]
  - Sleep terror [Recovered/Resolved]
  - Drug ineffective for unapproved indication [Unknown]
  - Product use in unapproved indication [Unknown]
